FAERS Safety Report 17631398 (Version 1)
Quarter: 2020Q2

REPORT INFORMATION
  Report Type: Spontaneous
  Country: US (occurrence: US)
  Receive Date: 20200403
  Receipt Date: 20200403
  Transmission Date: 20200713
  Serious: Yes (Life-Threatening, Hospitalization)
  Sender: FDA-Public Use
  Company Number: None

PATIENT
  Age: 69 Year
  Sex: Male
  Weight: 69.85 kg

DRUGS (1)
  1. JARDIANCE [Suspect]
     Active Substance: EMPAGLIFLOZIN
     Indication: DIABETES MELLITUS
     Route: 048
     Dates: start: 20200207, end: 20200222

REACTIONS (5)
  - Fatigue [None]
  - Diabetic ketoacidosis [None]
  - Dyspnoea [None]
  - Diabetes mellitus inadequate control [None]
  - Malaise [None]

NARRATIVE: CASE EVENT DATE: 20200228
